FAERS Safety Report 8433243-0 (Version None)
Quarter: 2012Q2

REPORT INFORMATION
  Report Type: 
  Country: None (occurrence: None)
  Receive Date: 20120323
  Receipt Date: 20110829
  Transmission Date: 20120825
  Serious: Yes (Hospitalization, Other)
  Sender: FDA-Public Use
  Company Number: 163-21880-11070647

PATIENT
  Age: 54 Year
  Sex: Female

DRUGS (15)
  1. NEURONTIN [Concomitant]
  2. TRAVATAN [Concomitant]
  3. ASPIRIN [Concomitant]
  4. SINGULAIR [Concomitant]
  5. LENALIDOMIDE [Suspect]
     Indication: PARAPROTEINAEMIA
     Dosage: 10 MG, DAILY X 21 DAYS, 1 WEEK OFF, PO : 10 MG, QOD, PO
     Route: 048
     Dates: start: 20110628, end: 20110712
  6. LENALIDOMIDE [Suspect]
     Indication: PARAPROTEINAEMIA
     Dosage: 10 MG, DAILY X 21 DAYS, 1 WEEK OFF, PO : 10 MG, QOD, PO
     Route: 048
     Dates: start: 20110725
  7. DEXAMETHASONE [Concomitant]
  8. PRAVASTATIN SODIUM [Concomitant]
  9. ATENOLOL [Concomitant]
  10. OXYCODONE HCL [Concomitant]
  11. AMLODIPINE BESYLATE [Concomitant]
  12. CYMBALTA [Concomitant]
  13. REQUIP [Concomitant]
  14. TEGRETOL [Concomitant]
  15. XANAX [Concomitant]

REACTIONS (7)
  - DEHYDRATION [None]
  - BLOOD POTASSIUM DECREASED [None]
  - VOMITING [None]
  - ASTHENIA [None]
  - DIARRHOEA [None]
  - DECREASED APPETITE [None]
  - NAUSEA [None]
